FAERS Safety Report 4608819-9 (Version None)
Quarter: 2005Q1

REPORT INFORMATION
  Report Type: 
  Country: None (occurrence: None)
  Receive Date: 20050315
  Receipt Date: 20050308
  Transmission Date: 20050727
  Serious: Yes (Hospitalization)
  Sender: FDA-Public Use
  Company Number: PHNU2005DE01272

PATIENT
  Age: 3 Year
  Sex: Male

DRUGS (1)
  1. CLOZARIL [Suspect]
     Indication: ACCIDENTAL EXPOSURE
     Dosage: 25 MG, ONCE/SINGLE
     Route: 048
     Dates: start: 20050308, end: 20050308

REACTIONS (3)
  - ACCIDENTAL EXPOSURE [None]
  - PALLOR [None]
  - SOMNOLENCE [None]
